FAERS Safety Report 21357400 (Version 1)
Quarter: 2022Q3

REPORT INFORMATION
  Report Type: Spontaneous
  Country: AU (occurrence: AU)
  Receive Date: 20220921
  Receipt Date: 20220921
  Transmission Date: 20221027
  Serious: Yes (Other)
  Sender: FDA-Public Use
  Company Number: None

PATIENT
  Age: 20 Year
  Sex: Female

DRUGS (4)
  1. NOVORAPID [Suspect]
     Active Substance: INSULIN ASPART
     Indication: Product used for unknown indication
     Dosage: 10 UNITS
  2. NOVORAPID [Suspect]
     Active Substance: INSULIN ASPART
     Dosage: 15 UNITS
  3. LANTUS [Suspect]
     Active Substance: INSULIN GLARGINE
     Dosage: 46 UNITS
  4. LANTUS [Suspect]
     Active Substance: INSULIN GLARGINE
     Indication: Product used for unknown indication
     Dosage: 20 UNITS

REACTIONS (3)
  - Vomiting [Unknown]
  - Blood glucose decreased [Recovering/Resolving]
  - Accidental overdose [Unknown]
